FAERS Safety Report 20861530 (Version 3)
Quarter: 2022Q3

REPORT INFORMATION
  Report Type: Spontaneous
  Country: US (occurrence: US)
  Receive Date: 20220523
  Receipt Date: 20220912
  Transmission Date: 20221026
  Serious: Yes (Other)
  Sender: FDA-Public Use
  Company Number: US-UCBSA-2022027560

PATIENT
  Sex: Female

DRUGS (5)
  1. CIMZIA [Suspect]
     Active Substance: CERTOLIZUMAB PEGOL
     Indication: Rheumatoid arthritis
     Dosage: 400 MILLIGRAM, EV 4 WEEKS
     Route: 058
     Dates: start: 20220102
  2. CIMZIA [Suspect]
     Active Substance: CERTOLIZUMAB PEGOL
     Indication: Spinal osteoarthritis
  3. CIMZIA [Suspect]
     Active Substance: CERTOLIZUMAB PEGOL
     Indication: Multiple sclerosis
  4. CIMZIA [Suspect]
     Active Substance: CERTOLIZUMAB PEGOL
     Indication: Off label use
  5. VUMERITY [Concomitant]
     Active Substance: DIROXIMEL FUMARATE
     Indication: Product used for unknown indication

REACTIONS (4)
  - Rheumatoid arthritis [Unknown]
  - Multiple sclerosis relapse [Unknown]
  - Spinal osteoarthritis [Unknown]
  - Off label use [Unknown]

NARRATIVE: CASE EVENT DATE: 20220101
